FAERS Safety Report 4390737-5 (Version None)
Quarter: 2004Q3

REPORT INFORMATION
  Report Type: 
  Country: None (occurrence: None)
  Receive Date: 20040706
  Receipt Date: 20040706
  Transmission Date: 20050211
  Serious: Yes (Death)
  Sender: FDA-Public Use
  Company Number: None

PATIENT
  Age: 75 Year
  Sex: Male
  Weight: 74.3899 kg

DRUGS (3)
  1. TAXOTERE [Suspect]
     Indication: GASTRIC CANCER
     Dosage: 77MG   DAY 1  INTRAVENOUS
     Route: 042
     Dates: start: 20040611, end: 20040611
  2. CARBOPLATIN [Suspect]
     Indication: GASTRIC CANCER
     Dosage: 145MG  DAY 1   INTRAVENOUS
     Route: 042
     Dates: start: 20040611, end: 20040611
  3. XELODA [Concomitant]

REACTIONS (6)
  - ASCITES [None]
  - ASTHENIA [None]
  - DEHYDRATION [None]
  - DEPRESSED LEVEL OF CONSCIOUSNESS [None]
  - FAILURE TO THRIVE [None]
  - OXYGEN SATURATION DECREASED [None]
